FAERS Safety Report 5535540-5 (Version None)
Quarter: 2007Q4

REPORT INFORMATION
  Report Type: 
  Country: None (occurrence: None)
  Receive Date: 20071203
  Receipt Date: 20071203
  Transmission Date: 20080405
  Serious: Yes (Hospitalization)
  Sender: FDA-Public Use
  Company Number: None

PATIENT
  Sex: Female
  Weight: 49.7 kg

DRUGS (16)
  1. IRESSA [Suspect]
     Indication: MENINGIOMA MALIGNANT
     Dosage: 1000MG PO QD X 14 DAYS 09/17/07 ALT WITH 500MG : 500MG PO QD X 14 DAYS 10/1/07 ALT WITH 1000MG
     Route: 048
     Dates: start: 20070917
  2. IRESSA [Suspect]
     Indication: MENINGIOMA MALIGNANT
     Dosage: 1000MG PO QD X 14 DAYS 09/17/07 ALT WITH 500MG : 500MG PO QD X 14 DAYS 10/1/07 ALT WITH 1000MG
     Route: 048
     Dates: start: 20071001
  3. CALTRATE [Concomitant]
  4. CLOBETASOL PROPIONATE [Concomitant]
  5. PROPIONATE [Concomitant]
  6. MAGNESIUM GLUCONATE [Concomitant]
  7. MEGACE [Concomitant]
  8. VITAMIN CAP [Concomitant]
  9. GABAPENTIN [Concomitant]
  10. AMLODIPINE [Concomitant]
  11. OMEGA 3 FATTY ACIDS [Concomitant]
  12. POTASSIUM CHLORIDE [Concomitant]
  13. ALBUTEROL [Concomitant]
  14. ZOFRAN [Concomitant]
  15. LOMOTIL [Concomitant]
  16. IMODIUM [Concomitant]

REACTIONS (5)
  - CHILLS [None]
  - DIARRHOEA [None]
  - HYPOKALAEMIA [None]
  - PYREXIA [None]
  - VOMITING [None]
